FAERS Safety Report 9495319 (Version 1)
Quarter: 2013Q3

REPORT INFORMATION
  Report Type: Spontaneous
  Country: IL (occurrence: IL)
  Receive Date: 20130903
  Receipt Date: 20130903
  Transmission Date: 20140515
  Serious: Yes (Other)
  Sender: FDA-Public Use
  Company Number: IL-ROCHE-1268149

PATIENT
  Sex: Female

DRUGS (3)
  1. MABTHERA [Suspect]
     Indication: B-CELL LYMPHOMA
     Route: 065
  2. FLUDARABINE [Concomitant]
     Indication: B-CELL LYMPHOMA
  3. CYCLOPHOSPHAMIDE [Concomitant]
     Indication: B-CELL LYMPHOMA

REACTIONS (1)
  - Progressive multifocal leukoencephalopathy [Unknown]
